FAERS Safety Report 5970925-4 (Version None)
Quarter: 2008Q4

REPORT INFORMATION
  Report Type: 
  Country: None (occurrence: None)
  Receive Date: 20081128
  Receipt Date: 20081118
  Transmission Date: 20090506
  Serious: Yes (Hospitalization, Other)
  Sender: FDA-Public Use
  Company Number: PHEH2008US10385

PATIENT
  Sex: Female

DRUGS (5)
  1. ZOMETA [Suspect]
     Dosage: UNK
  2. ZOMETA [Suspect]
     Dosage: UNK
  3. REVLIMID [Suspect]
     Indication: MULTIPLE MYELOMA
     Dosage: 15 MG CAPSULE X 21-28 DAY CYCLE
     Dates: start: 20070406, end: 20080901
  4. REVLIMID [Suspect]
     Dosage: 15 MG X 21 DAY CYCLE
     Dates: start: 20081006
  5. DEXAMETHASONE [Concomitant]
     Dosage: UNK
     Dates: start: 20080101

REACTIONS (5)
  - BONE DISORDER [None]
  - BRONCHITIS [None]
  - DISORIENTATION [None]
  - GINGIVAL DISORDER [None]
  - PNEUMONIA [None]
